FAERS Safety Report 21642285 (Version 1)
Quarter: 2022Q4

REPORT INFORMATION
  Report Type: Spontaneous
  Country: US (occurrence: US)
  Receive Date: 20221125
  Receipt Date: 20221125
  Transmission Date: 20230113
  Serious: No
  Sender: FDA-Public Use
  Company Number: US-GSK-US2022AMR170042

PATIENT
  Sex: Female

DRUGS (4)
  1. VALTREX [Suspect]
     Active Substance: VALACYCLOVIR HYDROCHLORIDE
     Indication: Product used for unknown indication
     Dosage: UNK
     Route: 065
  2. XOSPATA [Suspect]
     Active Substance: GILTERITINIB
     Indication: Acute myeloid leukaemia
     Dosage: 120 MG, QD
     Route: 048
     Dates: start: 202111
  3. XOSPATA [Suspect]
     Active Substance: GILTERITINIB
     Dosage: 120 MG, QD
     Route: 048
     Dates: start: 20211206
  4. XOSPATA [Suspect]
     Active Substance: GILTERITINIB
     Dosage: 120 MG, QD
     Route: 048
     Dates: start: 20220704

REACTIONS (6)
  - Nausea [Recovered/Resolved]
  - Dizziness [Recovered/Resolved]
  - Mammogram abnormal [Unknown]
  - Biopsy breast abnormal [Unknown]
  - White blood cell count decreased [Unknown]
  - Product dose omission issue [Unknown]
